APPROVED DRUG PRODUCT: NEODECADRON
Active Ingredient: DEXAMETHASONE SODIUM PHOSPHATE; NEOMYCIN SULFATE
Strength: EQ 0.1% PHOSPHATE;EQ 3.5MG BASE/ML
Dosage Form/Route: SOLUTION/DROPS;OPHTHALMIC
Application: N050322 | Product #001
Applicant: MERCK AND CO INC
Approved: Approved Prior to Jan 1, 1982 | RLD: No | RS: No | Type: DISCN